FAERS Safety Report 16809135 (Version 1)
Quarter: 2020Q3

REPORT INFORMATION
  Report Type: Report from Study
  Country: GR (occurrence: GR)
  Receive Date: 20190916
  Receipt Date: 20190916
  Transmission Date: 20201105
  Serious: Yes (Hospitalization)
  Sender: FDA-Public Use
  Company Number: GR-ROCHE-2402015

PATIENT
  Sex: Male
  Weight: 84 kg

DRUGS (5)
  1. POLATUZUMAB VEDOTIN. [Suspect]
     Active Substance: POLATUZUMAB VEDOTIN
     Indication: DIFFUSE LARGE B-CELL LYMPHOMA REFRACTORY
     Dosage: ONCE/2ID
     Route: 042
     Dates: start: 20190830, end: 20190830
  2. RITUXIMAB. [Suspect]
     Active Substance: RITUXIMAB
     Indication: DIFFUSE LARGE B-CELL LYMPHOMA REFRACTORY
     Dosage: ONCE/2ID
     Route: 041
     Dates: start: 20190830, end: 20190830
  3. BENTALYA [Suspect]
     Active Substance: BENDAMUSTINE HYDROCHLORIDE
     Indication: DIFFUSE LARGE B-CELL LYMPHOMA REFRACTORY
     Dosage: 1ST?2ND DAY/2ID
     Route: 042
     Dates: start: 20190830, end: 20190830
  4. ONDANSETRON [Concomitant]
     Active Substance: ONDANSETRON
     Dosage: 1X2
     Route: 042
     Dates: start: 20190830, end: 20190901
  5. HISTAKUT [Concomitant]
     Dosage: 1X2
     Route: 042
     Dates: start: 20190830, end: 20190830

REACTIONS (6)
  - Infection [Recovered/Resolved]
  - Chills [Recovered/Resolved]
  - Tachycardia [Recovered/Resolved]
  - Pyrexia [Recovered/Resolved]
  - Hypotension [Recovered/Resolved]
  - Tachypnoea [Recovered/Resolved]

NARRATIVE: CASE EVENT DATE: 20190830
